FAERS Safety Report 11329740 (Version 1)
Quarter: 2015Q3

REPORT INFORMATION
  Report Type: Spontaneous
  Country: US (occurrence: None)
  Receive Date: 20150730
  Receipt Date: 20150730
  Transmission Date: 20151125
  Serious: Yes (Hospitalization)
  Sender: FDA-Public Use
  Company Number: None

PATIENT
  Age: 52 Year
  Sex: Male

DRUGS (4)
  1. SULFAMETHOXAZOLE-TRIMETHOPRIM [Concomitant]
     Active Substance: SULFAMETHOXAZOLE\TRIMETHOPRIM
  2. PAZOPANIB [Suspect]
     Active Substance: PAZOPANIB
     Indication: NEOPLASM MALIGNANT
     Route: 048
     Dates: start: 20150109, end: 20150204
  3. ALLOPURINOL. [Concomitant]
     Active Substance: ALLOPURINOL
  4. NAPROXEN. [Concomitant]
     Active Substance: NAPROXEN

REACTIONS (10)
  - Fatigue [None]
  - Hyperhidrosis [None]
  - Rectal haemorrhage [None]
  - Haemoglobin decreased [None]
  - Thrombocytopenia [None]
  - Dyspnoea exertional [None]
  - Pyrexia [None]
  - Epistaxis [None]
  - Hypotension [None]
  - Dehydration [None]

NARRATIVE: CASE EVENT DATE: 20150205
